FAERS Safety Report 18050385 (Version 1)
Quarter: 2020Q3

REPORT INFORMATION
  Report Type: Spontaneous
  Country: DK (occurrence: DK)
  Receive Date: 20200721
  Receipt Date: 20200721
  Transmission Date: 20201103
  Serious: Yes (Hospitalization)
  Sender: FDA-Public Use
  Company Number: DK-TEVA-2020-DK-1802053

PATIENT
  Age: 25 Year
  Sex: Male
  Weight: 85 kg

DRUGS (1)
  1. FINASTERIDE ^TEVA^ [Suspect]
     Active Substance: FINASTERIDE
     Indication: ALOPECIA
     Dosage: STRENGTH: 1 MG, UNIT DOSE: 0.5 MG
     Route: 048
     Dates: start: 20200513, end: 20200608

REACTIONS (12)
  - Thyroxine increased [Unknown]
  - Anxiety [Not Recovered/Not Resolved]
  - Restlessness [Unknown]
  - Depression [Not Recovered/Not Resolved]
  - Mood swings [Not Recovered/Not Resolved]
  - Palpitations [Unknown]
  - Gynaecomastia [Not Recovered/Not Resolved]
  - Erectile dysfunction [Not Recovered/Not Resolved]
  - Hyperthyroidism [Unknown]
  - Irritability [Not Recovered/Not Resolved]
  - Hot flush [Not Recovered/Not Resolved]
  - Suicidal ideation [Not Recovered/Not Resolved]

NARRATIVE: CASE EVENT DATE: 20200610
